FAERS Safety Report 19912173 (Version 1)
Quarter: 2021Q4

REPORT INFORMATION
  Report Type: Report from Study
  Country: DE (occurrence: DE)
  Receive Date: 20211004
  Receipt Date: 20211004
  Transmission Date: 20220303
  Serious: Yes (Hospitalization)
  Sender: FDA-Public Use
  Company Number: DE-NOVARTISPH-NVSC2020DE245673

PATIENT
  Sex: Male
  Weight: 92.5 kg

DRUGS (44)
  1. COSENTYX [Suspect]
     Active Substance: SECUKINUMAB
     Indication: Psoriatic arthropathy
     Dosage: 300 MG, QW
     Route: 065
     Dates: start: 20190507
  2. COSENTYX [Suspect]
     Active Substance: SECUKINUMAB
     Dosage: 300 MG, QW
     Route: 065
     Dates: start: 20190514
  3. COSENTYX [Suspect]
     Active Substance: SECUKINUMAB
     Dosage: 300 MG, QW
     Route: 065
     Dates: start: 20190521
  4. COSENTYX [Suspect]
     Active Substance: SECUKINUMAB
     Dosage: 300 MG, QW
     Route: 065
     Dates: start: 20190528
  5. COSENTYX [Suspect]
     Active Substance: SECUKINUMAB
     Dosage: 300 MG, QW
     Route: 065
     Dates: start: 20190604
  6. COSENTYX [Suspect]
     Active Substance: SECUKINUMAB
     Dosage: 300 MG, QMO
     Route: 065
     Dates: start: 20190702
  7. COSENTYX [Suspect]
     Active Substance: SECUKINUMAB
     Dosage: 300 MG, QMO
     Route: 065
     Dates: start: 20190730
  8. COSENTYX [Suspect]
     Active Substance: SECUKINUMAB
     Dosage: 300 MG, QMO
     Route: 065
     Dates: start: 20190827
  9. COSENTYX [Suspect]
     Active Substance: SECUKINUMAB
     Dosage: 300 MG, QMO
     Route: 065
     Dates: start: 20190924
  10. COSENTYX [Suspect]
     Active Substance: SECUKINUMAB
     Dosage: 300 MG, QMO
     Route: 065
     Dates: start: 20191022
  11. COSENTYX [Suspect]
     Active Substance: SECUKINUMAB
     Dosage: 300 MG, QMO
     Route: 065
     Dates: start: 20191119
  12. COSENTYX [Suspect]
     Active Substance: SECUKINUMAB
     Dosage: 300 MG, QMO
     Route: 065
     Dates: start: 20191217
  13. COSENTYX [Suspect]
     Active Substance: SECUKINUMAB
     Dosage: 300 MG, QMO
     Route: 065
     Dates: start: 20200114
  14. COSENTYX [Suspect]
     Active Substance: SECUKINUMAB
     Dosage: 300 MG, QMO
     Route: 065
     Dates: start: 20200211
  15. COSENTYX [Suspect]
     Active Substance: SECUKINUMAB
     Dosage: 300 MG, QMO
     Route: 065
     Dates: start: 20200310
  16. COSENTYX [Suspect]
     Active Substance: SECUKINUMAB
     Dosage: 150 MG, QMO
     Route: 065
     Dates: start: 20200407
  17. COSENTYX [Suspect]
     Active Substance: SECUKINUMAB
     Dosage: 150 MG, QMO
     Route: 065
     Dates: start: 20200505
  18. COSENTYX [Suspect]
     Active Substance: SECUKINUMAB
     Dosage: 150 MG, QMO
     Route: 065
     Dates: start: 20200602
  19. COSENTYX [Suspect]
     Active Substance: SECUKINUMAB
     Dosage: 150 MG, QMO
     Route: 065
     Dates: start: 20200705, end: 20200705
  20. COSENTYX [Suspect]
     Active Substance: SECUKINUMAB
     Dosage: 300 MG, UNKNOWN
     Route: 065
     Dates: start: 20201111
  21. CANDESARTAN [Concomitant]
     Active Substance: CANDESARTAN
     Indication: Hypertension
     Dosage: 16 MG, QD
     Route: 048
     Dates: start: 20151015, end: 201812
  22. CANDESARTAN [Concomitant]
     Active Substance: CANDESARTAN
     Dosage: 16 MG, QD
     Route: 048
     Dates: start: 201812, end: 20191015
  23. CANDESARTAN [Concomitant]
     Active Substance: CANDESARTAN
     Dosage: 32 MG (ONCE IN THE MORNING)
     Route: 048
     Dates: start: 20191016, end: 20200406
  24. CANDESARTAN [Concomitant]
     Active Substance: CANDESARTAN
     Dosage: 16 MG, QD (A HALF DOSAGE OF 32MG IN MORNING)
     Route: 048
     Dates: start: 20200407, end: 20200817
  25. CANDESARTAN [Concomitant]
     Active Substance: CANDESARTAN
     Dosage: 12.5 MG, QD  (ONCE IN THE MORNING)
     Route: 048
     Dates: start: 20200818
  26. CHOLECALCIFEROL [Concomitant]
     Active Substance: CHOLECALCIFEROL
     Indication: Vitamin D deficiency
     Dosage: 20000 IU, Q2W
     Route: 048
     Dates: start: 201701
  27. IBUPROFEN [Concomitant]
     Active Substance: IBUPROFEN
     Indication: Psoriatic arthropathy
     Dosage: 800 MG, PRN
     Route: 048
     Dates: start: 20101203
  28. IBUPROFEN [Concomitant]
     Active Substance: IBUPROFEN
     Dosage: 800 MG, PRN
     Route: 048
     Dates: start: 201502
  29. HYDROCHLOROTHIAZIDE [Concomitant]
     Active Substance: HYDROCHLOROTHIAZIDE
     Indication: Hypertension
     Dosage: 0.5 DF, QD (25MG 1/2-0-0)
     Route: 048
     Dates: start: 201807, end: 20200113
  30. METOPROLOL [Concomitant]
     Active Substance: METOPROLOL
     Indication: Hypertension
     Dosage: 47.5 MG, QD ( 1-0-0)
     Route: 048
     Dates: start: 201801, end: 20200825
  31. METOPROLOL [Concomitant]
     Active Substance: METOPROLOL
     Dosage: 0.5 DF, QD (47.5 MG 1/2-0-0)
     Route: 048
     Dates: start: 20200826
  32. ZOPICLONE [Concomitant]
     Active Substance: ZOPICLONE
     Indication: Sleep disorder
     Dosage: 7.5 MG, PRN
     Route: 048
     Dates: start: 201610
  33. PANTOPRAZOLE [Concomitant]
     Active Substance: PANTOPRAZOLE
     Indication: Gastric mucosal hypertrophy
     Dosage: 40 MG, QOD
     Route: 048
     Dates: start: 201111
  34. PANTOPRAZOLE [Concomitant]
     Active Substance: PANTOPRAZOLE
     Indication: Gastritis erosive
  35. TRIAMCINOLONE [Concomitant]
     Active Substance: TRIAMCINOLONE
     Indication: Psoriasis
     Dosage: 0.1 %, PRN
     Route: 061
     Dates: start: 201711
  36. XYLOMETAZOLINE HYDROCHLORIDE [Concomitant]
     Active Substance: XYLOMETAZOLINE HYDROCHLORIDE
     Indication: Nasal turbinate abnormality
     Dosage: 0.1 %, QD (ONCE AT NIGHT)
     Route: 045
     Dates: start: 201812
  37. TAMSULOSIN HYDROCHLORIDE [Concomitant]
     Active Substance: TAMSULOSIN HYDROCHLORIDE
     Indication: Benign neoplasm of prostate
     Dosage: 0.4 MG, QD (ONCE IN THE EVENING)
     Route: 048
     Dates: start: 20200203, end: 20200826
  38. OPIPRAMOL [Concomitant]
     Active Substance: OPIPRAMOL
     Indication: Depression
     Dosage: 0.5 DF OF 100 MG (ONCE IN THE EVENING)
     Route: 048
     Dates: start: 20200826
  39. BISOPROLOL [Concomitant]
     Active Substance: BISOPROLOL
     Indication: Hypertension
     Dosage: 2.5 MG, QD (ONCE IN THE MORNING)
     Route: 048
     Dates: start: 20200818, end: 20200826
  40. METAMIZOLE [Concomitant]
     Active Substance: METAMIZOLE
     Indication: Psoriatic arthropathy
     Dosage: 500 MG, PRN
     Route: 048
     Dates: start: 20200818
  41. AMLODIPINE [Concomitant]
     Active Substance: AMLODIPINE BESYLATE
     Indication: Hypertension
     Dosage: 0.5 DF, QD (5MG)  (ONCE IN THE MORNING)
     Route: 048
     Dates: start: 20200818
  42. NIFEDIPINE [Concomitant]
     Active Substance: NIFEDIPINE
     Indication: Hypertension
     Dosage: 20 MG, PRN
     Route: 048
     Dates: start: 20200826
  43. CELECOXIB [Concomitant]
     Active Substance: CELECOXIB
     Indication: Product used for unknown indication
     Dosage: 200 MG, UNKNOWN
     Route: 065
     Dates: start: 20200902
  44. PREDNISOLONE [Concomitant]
     Active Substance: PREDNISOLONE
     Indication: Bursitis
     Dosage: 10 MG, UNKNOWN
     Route: 065
     Dates: start: 20200826, end: 20200826

REACTIONS (4)
  - Diverticulitis [Recovered/Resolved]
  - Enterovesical fistula [Recovered/Resolved]
  - Atrial fibrillation [Not Recovered/Not Resolved]
  - Gout [Not Recovered/Not Resolved]

NARRATIVE: CASE EVENT DATE: 20200724
